FAERS Safety Report 4272582-4 (Version None)
Quarter: 2004Q1

REPORT INFORMATION
  Report Type: 
  Country: None (occurrence: None)
  Receive Date: 20040114
  Receipt Date: 20040114
  Transmission Date: 20041129
  Serious: Yes (Other)
  Sender: FDA-Public Use
  Company Number: None

PATIENT
  Age: 36 Year
  Sex: Female
  Weight: 55.3388 kg

DRUGS (2)
  1. PAXIL [Suspect]
     Indication: ANXIETY
     Dosage: 20 MG DAILY
     Dates: start: 20020201, end: 20040115
  2. PAXIL [Suspect]
     Indication: DEPRESSION
     Dosage: 20 MG DAILY
     Dates: start: 20020201, end: 20040115

REACTIONS (2)
  - ABDOMINAL PAIN UPPER [None]
  - DRUG WITHDRAWAL SYNDROME [None]
